FAERS Safety Report 6631326-9 (Version None)
Quarter: 2010Q1

REPORT INFORMATION
  Report Type: 
  Country: None (occurrence: None)
  Receive Date: 20100311
  Receipt Date: 20100311
  Transmission Date: 20100710
  Serious: Yes (Other)
  Sender: FDA-Public Use
  Company Number: None

PATIENT
  Age: 15 Year
  Sex: Female
  Weight: 45.3597 kg

DRUGS (1)
  1. CREST WHITENING STRIPS ADVANCED SEAL  WHITE STRIPS [Suspect]

REACTIONS (2)
  - INCORRECT DRUG ADMINISTRATION DURATION [None]
  - PAIN [None]
